FAERS Safety Report 25241382 (Version 1)
Quarter: 2025Q2

REPORT INFORMATION
  Report Type: Spontaneous
  Country: US (occurrence: US)
  Receive Date: 20250425
  Receipt Date: 20250425
  Transmission Date: 20250717
  Serious: No
  Sender: MERCK SHARP & DOHME LLC
  Company Number: US-009507513-2271845

PATIENT
  Age: 64 Year
  Sex: Male
  Weight: 89 kg

DRUGS (4)
  1. SUGAMMADEX [Suspect]
     Active Substance: SUGAMMADEX
  2. LISINOPRIL [Concomitant]
     Active Substance: LISINOPRIL
  3. THIAMINE [Concomitant]
     Active Substance: THIAMINE
  4. METFORMIN [Concomitant]
     Active Substance: METFORMIN HYDROCHLORIDE

REACTIONS (1)
  - Product use in unapproved indication [Unknown]
